FAERS Safety Report 7618796-4 (Version None)
Quarter: 2011Q3

REPORT INFORMATION
  Report Type: 
  Country: None (occurrence: None)
  Receive Date: 20110718
  Receipt Date: 20110707
  Transmission Date: 20111222
  Serious: Yes (Other)
  Sender: FDA-Public Use
  Company Number: CA-JNJFOC-20110704071

PATIENT
  Sex: Female
  Weight: 64 kg

DRUGS (2)
  1. REMICADE [Suspect]
     Indication: CROHN'S DISEASE
     Route: 042
     Dates: start: 20090501
  2. REMICADE [Suspect]
     Route: 042
     Dates: start: 20110616

REACTIONS (4)
  - DYSPHAGIA [None]
  - RASH [None]
  - DYSPNOEA [None]
  - CHEST PAIN [None]
